FAERS Safety Report 25599300 (Version 1)
Quarter: 2025Q3

REPORT INFORMATION
  Report Type: Spontaneous
  Country: US (occurrence: US)
  Receive Date: 20250724
  Receipt Date: 20250724
  Transmission Date: 20251021
  Serious: Yes (Other)
  Sender: BAXTER
  Company Number: US-MLMSERVICE-20250711-PI575474-00175-1

PATIENT
  Age: 67 Year
  Sex: Male

DRUGS (2)
  1. HEPARIN SODIUM [Suspect]
     Active Substance: HEPARIN SODIUM
     Indication: Anticoagulant therapy
     Route: 065
  2. MILRINONE [Concomitant]
     Active Substance: MILRINONE
     Route: 065

REACTIONS (1)
  - Intra-abdominal haematoma [Recovering/Resolving]
